FAERS Safety Report 13157577 (Version 1)
Quarter: 2017Q1

REPORT INFORMATION
  Report Type: Spontaneous
  Country: US (occurrence: US)
  Receive Date: 20170126
  Receipt Date: 20170126
  Transmission Date: 20170428
  Serious: Yes (Life-Threatening)
  Sender: FDA-Public Use
  Company Number: None

PATIENT
  Age: 66 Year
  Sex: Male
  Weight: 81.4 kg

DRUGS (1)
  1. CARBOPLATIN. [Suspect]
     Active Substance: CARBOPLATIN
     Indication: CHEMOTHERAPY
     Dosage: OTHER
     Route: 042
     Dates: start: 20150408, end: 20150408

REACTIONS (3)
  - Tachycardia [None]
  - Oxygen saturation decreased [None]
  - Throat tightness [None]

NARRATIVE: CASE EVENT DATE: 20150408
